FAERS Safety Report 14544536 (Version 1)
Quarter: 2018Q1

REPORT INFORMATION
  Report Type: Spontaneous
  Country: FR (occurrence: FR)
  Receive Date: 20180217
  Receipt Date: 20180217
  Transmission Date: 20180509
  Serious: Yes (Hospitalization)
  Sender: FDA-Public Use
  Company Number: FR-ROCHE-2074582

PATIENT
  Age: 62 Year
  Sex: Male
  Weight: 87 kg

DRUGS (9)
  1. DUROGESIC [Concomitant]
     Active Substance: FENTANYL
     Route: 065
  2. PLAVIX [Concomitant]
     Active Substance: CLOPIDOGREL BISULFATE
     Route: 065
  3. PARACETAMOL [Concomitant]
     Active Substance: ACETAMINOPHEN
     Route: 065
  4. VENTOLINE [Concomitant]
     Active Substance: ALBUTEROL
     Route: 065
  5. XANAX [Concomitant]
     Active Substance: ALPRAZOLAM
     Route: 065
  6. PACLITAXEL KABI [Suspect]
     Active Substance: PACLITAXEL
     Indication: LUNG ADENOCARCINOMA
     Route: 042
     Dates: start: 20171013
  7. AVASTIN [Suspect]
     Active Substance: BEVACIZUMAB
     Indication: LUNG ADENOCARCINOMA
     Route: 042
     Dates: start: 20171013
  8. INNOHEP [Concomitant]
     Active Substance: TINZAPARIN SODIUM
     Route: 065
  9. ONBREZ BREEZHALER [Concomitant]
     Active Substance: INDACATEROL
     Route: 065

REACTIONS (1)
  - Ascites [Not Recovered/Not Resolved]

NARRATIVE: CASE EVENT DATE: 20180110
